FAERS Safety Report 5267958-2 (Version None)
Quarter: 2007Q1

REPORT INFORMATION
  Report Type: 
  Country: None (occurrence: None)
  Receive Date: 20061213
  Receipt Date: 20031106
  Transmission Date: 20070707
  Serious: Yes (Hospitalization)
  Sender: FDA-Public Use
  Company Number: 2003UW14624

PATIENT
  Age: 74 Year
  Sex: Male
  Weight: 63.5036 kg

DRUGS (2)
  1. IRESSA [Suspect]
     Indication: ADRENAL GLAND CANCER METASTATIC
     Dosage: 250 MG PO
     Route: 048
     Dates: start: 20031016, end: 20031102
  2. IRESSA [Suspect]
     Indication: NON-SMALL CELL LUNG CANCER
     Dosage: 250 MG PO
     Route: 048
     Dates: start: 20031016, end: 20031102

REACTIONS (1)
  - DYSPNOEA [None]
